FAERS Safety Report 5599726-6 (Version None)
Quarter: 2008Q1

REPORT INFORMATION
  Report Type: 
  Country: None (occurrence: None)
  Receive Date: 20080123
  Receipt Date: 20080115
  Transmission Date: 20080703
  Serious: Yes (Hospitalization)
  Sender: FDA-Public Use
  Company Number: JP-BRISTOL-MYERS SQUIBB COMPANY-14045603

PATIENT
  Age: 38 Year
  Sex: Male

DRUGS (5)
  1. REYATAZ [Suspect]
     Indication: HIV INFECTION
     Dosage: 400MG:17JAN04-11JUL04 (DURATION : 177 DAYS) 300MG:12JUL04-UNKNOWN
     Route: 048
     Dates: start: 20040117
  2. NORVIR [Suspect]
     Indication: HIV INFECTION
     Route: 048
     Dates: start: 20040712
  3. EPIVIR [Concomitant]
     Dosage: 150MG 2/1D : 14AUG1998-16JAN2004 300MG 1/1D : 17JAN2004-UNKNOWN
     Route: 048
     Dates: start: 19980814
  4. VIREAD [Concomitant]
     Route: 048
     Dates: start: 20040712
  5. RECOMBINATE [Concomitant]
     Route: 042
     Dates: start: 20060401

REACTIONS (1)
  - HAEMORRHAGE [None]
